FAERS Safety Report 7851291-6 (Version None)
Quarter: 2011Q4

REPORT INFORMATION
  Report Type: 
  Country: None (occurrence: None)
  Receive Date: 20111026
  Receipt Date: 20110908
  Transmission Date: 20120403
  Serious: No
  Sender: FDA-Public Use
  Company Number: US-BAYER-2011-084953

PATIENT
  Sex: Female

DRUGS (2)
  1. ALEVE (CAPLET) [Suspect]
     Dosage: DOSE AS USED: 8. PACKAGE SIZE: NOT SPECIFIED.
     Route: 048
  2. IBUPROFEN [Concomitant]
     Indication: DYSMENORRHOEA
     Dosage: SHE TOOK 8 IBUPROFEIN IN LESS THAN 24 HOURS

REACTIONS (1)
  - NO ADVERSE EVENT [None]
